FAERS Safety Report 14197915 (Version 2)
Quarter: 2017Q4

REPORT INFORMATION
  Report Type: Spontaneous
  Country: CN (occurrence: CN)
  Receive Date: 20171117
  Receipt Date: 20171128
  Transmission Date: 20180321
  Serious: No
  Sender: FDA-Public Use
  Company Number: CN-ASTRAZENECA-2017SF16019

PATIENT
  Age: 71 Year
  Sex: Female

DRUGS (2)
  1. TAGRISSO [Suspect]
     Active Substance: OSIMERTINIB
     Route: 048
     Dates: start: 201710
  2. TAGRISSO [Suspect]
     Active Substance: OSIMERTINIB
     Route: 048

REACTIONS (5)
  - Pneumonitis [Unknown]
  - Loss of control of legs [Unknown]
  - Hypoaesthesia [Not Recovered/Not Resolved]
  - Palpitations [Recovering/Resolving]
  - Discomfort [Unknown]
